FAERS Safety Report 23949351 (Version 1)
Quarter: 2024Q2

REPORT INFORMATION
  Report Type: Spontaneous
  Country: CA (occurrence: CA)
  Receive Date: 20240607
  Receipt Date: 20240607
  Transmission Date: 20240715
  Serious: Yes (Death, Other)
  Sender: FDA-Public Use
  Company Number: CA-AMGEN-CANSP2024109035

PATIENT
  Age: 66 Year
  Sex: Female

DRUGS (3)
  1. RITUXIMAB [Suspect]
     Active Substance: RITUXIMAB
     Indication: Hairy cell leukaemia
     Dosage: UNK
     Route: 065
  2. VEMURAFENIB [Concomitant]
     Active Substance: VEMURAFENIB
     Indication: Hairy cell leukaemia
     Dosage: UNK
  3. CLADRIBINE [Concomitant]
     Active Substance: CLADRIBINE
     Indication: Hairy cell leukaemia
     Dosage: UNK

REACTIONS (2)
  - Death [Fatal]
  - Hairy cell leukaemia [Unknown]
